FAERS Safety Report 7276690-5 (Version None)
Quarter: 2011Q1

REPORT INFORMATION
  Report Type: 
  Country: None (occurrence: None)
  Receive Date: 20110204
  Receipt Date: 20110125
  Transmission Date: 20110831
  Serious: Yes (Other)
  Sender: FDA-Public Use
  Company Number: US-MERCK-1101USA00197

PATIENT
  Age: 70 Year
  Sex: Male
  Weight: 44 kg

DRUGS (6)
  1. INVANZ [Suspect]
     Route: 065
  2. HYDROMORPHONE [Concomitant]
     Indication: PAIN
     Route: 042
  3. ERYTHROMYCIN [Concomitant]
     Route: 065
  4. PROMETHAZINE [Concomitant]
     Indication: VOMITING
     Route: 065
  5. PROMETHAZINE [Concomitant]
     Indication: NAUSEA
     Route: 065
  6. OXYGEN [Concomitant]
     Route: 055

REACTIONS (3)
  - DEPRESSED LEVEL OF CONSCIOUSNESS [None]
  - DELIRIUM [None]
  - NERVOUS SYSTEM DISORDER [None]
